FAERS Safety Report 6998722-1 (Version None)
Quarter: 2010Q3

REPORT INFORMATION
  Report Type: 
  Country: None (occurrence: None)
  Receive Date: 20100920
  Receipt Date: 20090805
  Transmission Date: 20110219
  Serious: No
  Sender: FDA-Public Use
  Company Number: US-ASTRAZENECA-2009SE06885

PATIENT
  Age: 24240 Day
  Sex: Female
  Weight: 49 kg

DRUGS (1)
  1. SEROQUEL [Suspect]
     Dosage: 16 SEROQUEL 50 MG
     Route: 048

REACTIONS (4)
  - DEPRESSION [None]
  - OVERDOSE [None]
  - SPEECH DISORDER [None]
  - THERAPY REGIMEN CHANGED [None]
